FAERS Safety Report 7086527-5 (Version None)
Quarter: 2010Q4

REPORT INFORMATION
  Report Type: 
  Country: None (occurrence: None)
  Receive Date: 20101105
  Receipt Date: 20101015
  Transmission Date: 20110411
  Serious: Yes (Hospitalization, Other)
  Sender: FDA-Public Use
  Company Number: US-BAYER-201013982NA

PATIENT
  Age: 45 Year
  Sex: Female
  Weight: 64 kg

DRUGS (7)
  1. YASMIN [Suspect]
     Indication: CONTRACEPTION
     Route: 048
     Dates: start: 20021101, end: 20061201
  2. ASCORBIC ACID [Concomitant]
  3. PERCOCET [Concomitant]
     Indication: PAIN
     Dates: start: 20060101
  4. WELLBUTRIN [Concomitant]
     Indication: ANXIETY
  5. NSAIDS [Concomitant]
  6. ANTIBIOTICS [Concomitant]
  7. STEROIDS [Concomitant]
     Dates: start: 20060101

REACTIONS (4)
  - CHOLECYSTECTOMY [None]
  - INJURY [None]
  - PULMONARY EMBOLISM [None]
  - THROMBOSIS [None]
